FAERS Safety Report 5357197-9 (Version None)
Quarter: 2007Q2

REPORT INFORMATION
  Report Type: 
  Country: None (occurrence: None)
  Receive Date: 20070612
  Receipt Date: 20070612
  Transmission Date: 20071010
  Serious: Yes (Life-Threatening)
  Sender: FDA-Public Use
  Company Number: None

PATIENT
  Sex: Male
  Weight: 65 kg

DRUGS (1)
  1. NEOSTIGMINE [Suspect]
     Indication: ILEUS
     Dosage: 2MG IV
     Route: 042
     Dates: start: 20070512, end: 20070512

REACTIONS (3)
  - BRONCHOSPASM [None]
  - CARDIO-RESPIRATORY ARREST [None]
  - RESPIRATORY ARREST [None]
